FAERS Safety Report 6059032-2 (Version None)
Quarter: 2009Q1

REPORT INFORMATION
  Report Type: 
  Country: None (occurrence: None)
  Receive Date: 20090130
  Receipt Date: 20090123
  Transmission Date: 20090719
  Serious: Yes (Hospitalization)
  Sender: FDA-Public Use
  Company Number: B0554549A

PATIENT
  Age: 40 Year
  Sex: Female

DRUGS (2)
  1. ARIXTRA [Suspect]
     Indication: PHLEBITIS
     Dosage: 7.5MG PER DAY
     Route: 058
     Dates: start: 20080927, end: 20080930
  2. COMPRESSION STOCKINGS [Concomitant]

REACTIONS (5)
  - DRUG INEFFECTIVE [None]
  - MALAISE [None]
  - PHLEBITIS [None]
  - PULMONARY EMBOLISM [None]
  - SENSE OF OPPRESSION [None]
